FAERS Safety Report 24314297 (Version 1)
Quarter: 2024Q3

REPORT INFORMATION
  Report Type: Report from Study
  Country: CA (occurrence: CA)
  Receive Date: 20240912
  Receipt Date: 20240912
  Transmission Date: 20241016
  Serious: Yes (Other)
  Sender: JOHNSON AND JOHNSON
  Company Number: CA-JNJFOC-20240907709

PATIENT
  Age: 50 Year
  Sex: Female

DRUGS (2)
  1. SIMPONI [Suspect]
     Active Substance: GOLIMUMAB
     Indication: Ankylosing spondylitis
     Route: 058
     Dates: start: 20220912
  2. SIMPONI [Suspect]
     Active Substance: GOLIMUMAB
     Route: 058

REACTIONS (6)
  - Kidney infection [Recovering/Resolving]
  - Vertigo [Recovered/Resolved]
  - Cystitis [Recovering/Resolving]
  - Head discomfort [Recovering/Resolving]
  - Neck pain [Recovering/Resolving]
  - Middle ear disorder [Unknown]

NARRATIVE: CASE EVENT DATE: 20240801
